FAERS Safety Report 5876792-1 (Version None)
Quarter: 2008Q3

REPORT INFORMATION
  Report Type: 
  Country: None (occurrence: None)
  Receive Date: 20080818
  Receipt Date: 20071016
  Transmission Date: 20090109
  Serious: No
  Sender: FDA-Public Use
  Company Number: 20074178

PATIENT
  Sex: Female

DRUGS (1)
  1. LIORESAL [Suspect]
     Indication: MUSCLE SPASTICITY
     Dosage: 1300 MCG,DAILY,INTRATHECAL
     Route: 037

REACTIONS (4)
  - CONFUSIONAL STATE [None]
  - HYPERTONIA [None]
  - PRURITUS [None]
  - WITHDRAWAL SYNDROME [None]
